FAERS Safety Report 7497196 (Version 3)
Quarter: 2020Q3

REPORT INFORMATION
  Report Type: Report from Study
  Country: GB (occurrence: BR)
  Receive Date: 20100722
  Receipt Date: 20101029
  Transmission Date: 20201104
  Serious: Yes (Other)
  Sender: FDA-Public Use
  Company Number: BR-GENENTECH-304289

PATIENT
  Age: 60 Year
  Sex: Female
  Weight: 79 kg

DRUGS (18)
  1. METHOTREXATE. [Concomitant]
     Active Substance: METHOTREXATE
     Dosage: 7.5 MG, UNK
  2. ARTRODAR [Concomitant]
     Dosage: UNK
  3. VITAMIN C [Concomitant]
     Active Substance: ASCORBIC ACID
     Dosage: UNK
  4. CETIRIZINE HYDROCHLORIDE. [Concomitant]
     Active Substance: CETIRIZINE HYDROCHLORIDE
     Indication: PREMEDICATION
     Dosage: 20 MG, UNK
  5. RITUXIMAB. [Suspect]
     Active Substance: RITUXIMAB
     Dosage: UNK
     Route: 042
     Dates: start: 20090423, end: 20091124
  6. METHOTREXATE. [Concomitant]
     Active Substance: METHOTREXATE
     Dosage: 10 MG, UNK
  7. RITUXIMAB. [Suspect]
     Active Substance: RITUXIMAB
     Indication: RHEUMATOID ARTHRITIS
     Dosage: 1000 MG/ML, Q15D
     Route: 042
     Dates: start: 200803
  8. METHOTREXATE. [Concomitant]
     Active Substance: METHOTREXATE
     Dosage: 7.5 MG, UNK
  9. AMLODIPINE MESILATE [Concomitant]
     Dosage: 5 MG, UNK
  10. IBANDRONIC ACID. [Suspect]
     Active Substance: IBANDRONIC ACID
     Dosage: UNK
     Route: 065
  11. MIOCALVEN [Concomitant]
     Dosage: UNK
  12. PARACETAMOL [Concomitant]
     Active Substance: ACETAMINOPHEN
     Indication: PAIN
     Dosage: UNK
  13. LOSARTAN [Concomitant]
     Dosage: 25 MG, UNK
  14. RITUXIMAB. [Suspect]
     Active Substance: RITUXIMAB
     Dosage: UNK MG, X2
     Route: 042
     Dates: start: 20100812, end: 20100827
  15. AMLODIPINE BESYLATE. [Concomitant]
     Active Substance: AMLODIPINE BESYLATE
     Dosage: 5 MG, UNK
  16. PREDNISONE [Concomitant]
     Indication: PREMEDICATION
     Dosage: 5 MG, UNK
  17. SOLU?MEDROL [Concomitant]
     Active Substance: METHYLPREDNISOLONE SODIUM SUCCINATE
     Indication: PREMEDICATION
     Dosage: 100 MG, UNK
  18. ACETAMINOPHEN. [Concomitant]
     Active Substance: ACETAMINOPHEN
     Indication: PREMEDICATION
     Dosage: 500 MG, UNK

REACTIONS (13)
  - Ovarian cyst [Unknown]
  - Blood albumin increased [Unknown]
  - Joint swelling [Unknown]
  - Hand deformity [Unknown]
  - Nodule [Unknown]
  - Blood cholesterol increased [Unknown]
  - Fatigue [Unknown]
  - Osteopenia [Unknown]
  - Arthralgia [Unknown]
  - Asthenia [Recovering/Resolving]
  - Bone pain [Recovering/Resolving]
  - Pain [Unknown]
  - Immunoglobulins increased [Unknown]

NARRATIVE: CASE EVENT DATE: 20090101
